FAERS Safety Report 9646544 (Version 1)
Quarter: 2013Q4

REPORT INFORMATION
  Report Type: Report from Study
  Country: US (occurrence: US)
  Receive Date: 20131025
  Receipt Date: 20131025
  Transmission Date: 20140711
  Serious: Yes (Death)
  Sender: FDA-Public Use
  Company Number: US-ABBVIE-13P-163-1160220-00

PATIENT
  Age: 65 Year
  Sex: Female

DRUGS (1)
  1. HUMIRA [Suspect]
     Indication: RHEUMATOID ARTHRITIS

REACTIONS (6)
  - Completed suicide [Fatal]
  - Fall [Unknown]
  - Compression fracture [Unknown]
  - Staphylococcal infection [Unknown]
  - Pain [Unknown]
  - Multimorbidity [Unknown]
